FAERS Safety Report 25735042 (Version 3)
Quarter: 2025Q4

REPORT INFORMATION
  Report Type: Report from Study
  Country: US (occurrence: US)
  Receive Date: 20250828
  Receipt Date: 20251031
  Transmission Date: 20260117
  Serious: No
  Sender: AVERITAS
  Company Number: US-GRUNENTHAL-2025-113545

PATIENT
  Sex: Female

DRUGS (1)
  1. QUTENZA [Suspect]
     Active Substance: CAPSAICIN
     Indication: Diabetic neuropathy
     Dosage: UNK, ONCE
     Route: 061
     Dates: start: 20250804, end: 20250804

REACTIONS (4)
  - Burning sensation [Not Recovered/Not Resolved]
  - Feeling hot [Unknown]
  - Pain [Recovered/Resolved]
  - Gout [Unknown]

NARRATIVE: CASE EVENT DATE: 20250101
